FAERS Safety Report 8383525-6 (Version None)
Quarter: 2012Q2

REPORT INFORMATION
  Report Type: 
  Country: None (occurrence: None)
  Receive Date: 20120522
  Receipt Date: 20120507
  Transmission Date: 20120825
  Serious: Yes (Hospitalization, Other)
  Sender: FDA-Public Use
  Company Number: CIP11002243

PATIENT
  Age: 58 Year
  Sex: Female

DRUGS (64)
  1. BENZTROPINE MESYLATE [Concomitant]
  2. AXERT [Concomitant]
  3. ACIPHEX [Concomitant]
  4. FOLPLEX (CYANOCOBALAMIN, FOLIC ACID, PYRIDOXINE HYDROCHLORIDE) [Concomitant]
  5. CYCLOBENZAPRINE [Concomitant]
  6. ZOFRAN /00955301/ (ONDANSETRON) [Concomitant]
  7. CARAFATE [Concomitant]
  8. NORVASC [Concomitant]
  9. DOXAZOSIN MESYLATE [Concomitant]
  10. CARISOPRODOL (CARISOPRODOL) [Concomitant]
  11. NYSTATIN W/TRIAMCINOLONE /00945901/ (NYSTATIN, TRIAMCINOLONE ACETONIDE [Concomitant]
  12. APAP W/CODEINE (CODEINE, PARACETAMOL) [Concomitant]
  13. ALLEGRA-D 12 HOUR [Concomitant]
  14. ZYRTEC [Concomitant]
  15. CIMETIDINE [Concomitant]
  16. HYDROXYZINE PAMOATE [Concomitant]
  17. VITAMIN B12 [Concomitant]
  18. ACTONEL [Suspect]
     Indication: OSTEOPOROSIS
     Dosage: 35 MG ONCE WEEKLY, ORAL
     Route: 048
     Dates: start: 20041206, end: 20060202
  19. PREVIDENT (SODIUM FLUORIDE) [Concomitant]
  20. QUININE SULFATE [Concomitant]
  21. SONATA /01454001/ (ZALEPLON) [Concomitant]
  22. GABITRIL [Concomitant]
  23. ANTIPYRINE W/BENZOCAINE (BENZOCAINE, PHENAZONE) [Concomitant]
  24. NITROFURANTOIN [Concomitant]
  25. VITAMIN C /00008001/ (ASCORBIC ACID) [Concomitant]
  26. ZOMIG [Concomitant]
  27. LUNESTA [Concomitant]
  28. MECLIZINE /00072801/ (MECLOZINE) [Concomitant]
  29. MICARDIS [Concomitant]
  30. AMOXICILLIN [Concomitant]
  31. SEROQUEL [Concomitant]
  32. PREVALITE [Concomitant]
  33. PRECOSE [Concomitant]
  34. TRAMADOL/APAP (PARACETAMOL, TRAMADOL HYDROCHLORIDE) [Concomitant]
  35. ORPHENADRINE CITRATE [Concomitant]
  36. DOXEPIN HCL [Concomitant]
  37. NALTREXONE HYDROCHLORIDE [Concomitant]
  38. CENTRUM SILVER /01292501/ (ASCORBIC ACID, CALCIUM, MINERALS NOS, RETIN [Concomitant]
  39. BONIVA [Suspect]
     Dosage: 150 MG ONCE MONTHLY, ORAL
     Route: 048
     Dates: start: 20060306, end: 20090909
  40. TOPAMAX [Concomitant]
  41. PAROXETINE HCL [Concomitant]
  42. TRIAMCINOLONE [Concomitant]
  43. MIRTAZAPINE [Concomitant]
  44. TERAZOSIN HCL [Concomitant]
  45. CHLORPROMAZINE [Concomitant]
  46. FEXOFENADINE HCL [Concomitant]
  47. FERGON [Concomitant]
  48. RECLAST [Suspect]
     Dates: start: 20101101
  49. CHLORAL HYDRATE (CHLORAL HYDRATE) [Concomitant]
  50. HALOPERIDOL LACTATE [Concomitant]
  51. SYNTHROID [Concomitant]
  52. DIAZEPAM [Concomitant]
  53. CLARINEX /01398501/ (DESLORATADINE) [Concomitant]
  54. PREMARIN [Concomitant]
  55. VAGIFEM [Concomitant]
  56. EXCEDRIN MIGRAINE (ACETYLSALICYLIC ACID, CAFFEINE, PARACETAMOL) [Concomitant]
  57. CIPROFLOXACIN [Concomitant]
  58. CLONAZEPAM [Concomitant]
  59. BUTALBITAL/APAP (BUTALBITAL, PARACETAMOL) [Concomitant]
  60. PYRIDIUM (PHENAZOPYRIDINE HYDROCHLORIDE) [Concomitant]
  61. ENABLEX /01760401/ (DARIFENACIN) [Concomitant]
  62. CYMBALTA [Concomitant]
  63. MUPIROCIN [Concomitant]
  64. VITAMIN B (VITAMIN B COMPLEX) [Concomitant]

REACTIONS (23)
  - MOBILITY DECREASED [None]
  - GROIN PAIN [None]
  - LOW TURNOVER OSTEOPATHY [None]
  - PATHOLOGICAL FRACTURE [None]
  - WOUND DEHISCENCE [None]
  - STAPHYLOCOCCAL INFECTION [None]
  - OSTEOPOROTIC FRACTURE [None]
  - FRACTURE NONUNION [None]
  - BONE DISORDER [None]
  - ABSCESS LIMB [None]
  - CHEST PAIN [None]
  - FEMUR FRACTURE [None]
  - FRACTURE DISPLACEMENT [None]
  - ARTHRALGIA [None]
  - MIGRAINE [None]
  - STRESS FRACTURE [None]
  - OSTEOGENESIS IMPERFECTA [None]
  - BONE GRAFT [None]
  - PAIN [None]
  - FALL [None]
  - TINEA PEDIS [None]
  - MASS [None]
  - HYPONATRAEMIA [None]
